FAERS Safety Report 20475919 (Version 4)
Quarter: 2022Q1

REPORT INFORMATION
  Report Type: Report from Study
  Country: US (occurrence: US)
  Receive Date: 20220215
  Receipt Date: 20220323
  Transmission Date: 20220423
  Serious: Yes (Hospitalization)
  Sender: FDA-Public Use
  Company Number: US-TAKEDA-2022TUS010123

PATIENT
  Sex: Male

DRUGS (13)
  1. TEDUGLUTIDE [Suspect]
     Active Substance: TEDUGLUTIDE
     Indication: Malnutrition
     Dosage: 2.85 MILLIGRAM, QD
     Route: 058
     Dates: start: 20220119
  2. TEDUGLUTIDE [Suspect]
     Active Substance: TEDUGLUTIDE
     Indication: Malnutrition
     Dosage: 2.85 MILLIGRAM, QD
     Route: 058
     Dates: start: 20220119
  3. TEDUGLUTIDE [Suspect]
     Active Substance: TEDUGLUTIDE
     Indication: Malnutrition
     Dosage: 2.85 MILLIGRAM, QD
     Route: 058
     Dates: start: 20220119
  4. TEDUGLUTIDE [Suspect]
     Active Substance: TEDUGLUTIDE
     Indication: Malnutrition
     Dosage: 2.85 MILLIGRAM, QD
     Route: 058
     Dates: start: 20220119
  5. TEDUGLUTIDE [Suspect]
     Active Substance: TEDUGLUTIDE
     Indication: Post procedural complication
     Dosage: 2.85 MILLIGRAM, QD
     Route: 058
     Dates: start: 20220121
  6. TEDUGLUTIDE [Suspect]
     Active Substance: TEDUGLUTIDE
     Indication: Post procedural complication
     Dosage: 2.85 MILLIGRAM, QD
     Route: 058
     Dates: start: 20220121
  7. TEDUGLUTIDE [Suspect]
     Active Substance: TEDUGLUTIDE
     Indication: Post procedural complication
     Dosage: 2.85 MILLIGRAM, QD
     Route: 058
     Dates: start: 20220121
  8. TEDUGLUTIDE [Suspect]
     Active Substance: TEDUGLUTIDE
     Indication: Post procedural complication
     Dosage: 2.85 MILLIGRAM, QD
     Route: 058
     Dates: start: 20220121
  9. TEDUGLUTIDE [Suspect]
     Active Substance: TEDUGLUTIDE
     Indication: Diarrhoea
     Dosage: 2.85 MILLIGRAM, QD
     Route: 058
     Dates: start: 202201
  10. TEDUGLUTIDE [Suspect]
     Active Substance: TEDUGLUTIDE
     Indication: Diarrhoea
     Dosage: 2.85 MILLIGRAM, QD
     Route: 058
     Dates: start: 202201
  11. TEDUGLUTIDE [Suspect]
     Active Substance: TEDUGLUTIDE
     Indication: Diarrhoea
     Dosage: 2.85 MILLIGRAM, QD
     Route: 058
     Dates: start: 202201
  12. TEDUGLUTIDE [Suspect]
     Active Substance: TEDUGLUTIDE
     Indication: Diarrhoea
     Dosage: 2.85 MILLIGRAM, QD
     Route: 058
     Dates: start: 202201
  13. OCTREOTIDE [Concomitant]
     Active Substance: OCTREOTIDE
     Dosage: UNK
     Route: 065

REACTIONS (6)
  - Hospitalisation [Unknown]
  - Fluid retention [Unknown]
  - Peripheral swelling [Unknown]
  - Flatulence [Unknown]
  - Device difficult to use [Unknown]
  - Off label use [Unknown]
